FAERS Safety Report 18642442 (Version 1)
Quarter: 2020Q4

REPORT INFORMATION
  Report Type: Spontaneous
  Country: US (occurrence: US)
  Receive Date: 20201218
  Receipt Date: 20201218
  Transmission Date: 20210114
  Serious: Yes (Disabling)
  Sender: FDA-Public Use
  Company Number: None

PATIENT
  Age: 28 Year
  Weight: 69.3 kg

DRUGS (4)
  1. ALBUTEROL. [Concomitant]
     Active Substance: ALBUTEROL
  2. MULTIVITAMINS [Concomitant]
     Active Substance: VITAMINS
  3. CBD [Concomitant]
     Active Substance: CANNABIDIOL
  4. DULOXETINE. [Suspect]
     Active Substance: DULOXETINE
     Indication: DEPRESSION
     Dosage: ?          QUANTITY:60 CAPSULE(S);?
     Route: 048
     Dates: start: 20201120

REACTIONS (4)
  - Hyperhidrosis [None]
  - Intentional product use issue [None]
  - Sleep disorder [None]
  - Sleep talking [None]

NARRATIVE: CASE EVENT DATE: 20201130
